FAERS Safety Report 11036200 (Version 3)
Quarter: 2016Q2

REPORT INFORMATION
  Report Type: Spontaneous
  Country: US (occurrence: US)
  Receive Date: 20150415
  Receipt Date: 20160530
  Transmission Date: 20160815
  Serious: Yes (Other)
  Sender: FDA-Public Use
  Company Number: US-JNJFOC-20140904630

PATIENT
  Age: 71 Year
  Sex: Male
  Weight: 73.48 kg

DRUGS (6)
  1. XARELTO [Suspect]
     Active Substance: RIVAROXABAN
     Indication: CEREBROVASCULAR ACCIDENT PROPHYLAXIS
     Route: 048
     Dates: start: 20140806, end: 20140813
  2. XARELTO [Suspect]
     Active Substance: RIVAROXABAN
     Indication: CEREBROVASCULAR ACCIDENT PROPHYLAXIS
     Route: 048
  3. XARELTO [Suspect]
     Active Substance: RIVAROXABAN
     Indication: ATRIAL FIBRILLATION
     Route: 048
  4. ATENOLOL. [Concomitant]
     Active Substance: ATENOLOL
     Indication: ATRIAL FIBRILLATION
     Route: 048
     Dates: start: 201408
  5. XARELTO [Suspect]
     Active Substance: RIVAROXABAN
     Indication: ATRIAL FIBRILLATION
     Route: 048
     Dates: start: 20140806, end: 20140813
  6. FLOMAX [Concomitant]
     Active Substance: TAMSULOSIN HYDROCHLORIDE
     Indication: PROSTATIC DISORDER
     Route: 048
     Dates: start: 201407

REACTIONS (9)
  - Vessel puncture site bruise [Recovered/Resolved]
  - Gait disturbance [Not Recovered/Not Resolved]
  - Treatment noncompliance [Unknown]
  - Asthenia [Not Recovered/Not Resolved]
  - Dyspnoea [Not Recovered/Not Resolved]
  - Balance disorder [Not Recovered/Not Resolved]
  - Inappropriate schedule of drug administration [Unknown]
  - Abasia [Not Recovered/Not Resolved]
  - Prostatic specific antigen abnormal [Unknown]

NARRATIVE: CASE EVENT DATE: 20140806
